FAERS Safety Report 12179506 (Version 1)
Quarter: 2016Q1

REPORT INFORMATION
  Report Type: Spontaneous
  Country: FR (occurrence: FR)
  Receive Date: 20160314
  Receipt Date: 20160314
  Transmission Date: 20160526
  Serious: Yes (Life-Threatening)
  Sender: FDA-Public Use
  Company Number: FR-SA-2016SA050131

PATIENT
  Age: 16 Year
  Sex: Female

DRUGS (9)
  1. PENTASA [Suspect]
     Active Substance: MESALAMINE
     Indication: COLITIS
     Route: 048
     Dates: start: 201511, end: 20151213
  2. RIFADINE [Suspect]
     Active Substance: RIFAMPIN
     Route: 042
     Dates: start: 20151104, end: 20151203
  3. INEXIUM [Suspect]
     Active Substance: ESOMEPRAZOLE
     Indication: GASTRITIS PROPHYLAXIS
     Route: 048
     Dates: start: 20151025, end: 20151210
  4. TAVANIC [Suspect]
     Active Substance: LEVOFLOXACIN
     Route: 042
     Dates: start: 20151025, end: 20151103
  5. TAZOCILLINE [Suspect]
     Active Substance: PIPERACILLIN SODIUM\TAZOBACTAM SODIUM
     Route: 042
     Dates: start: 20151118, end: 20151210
  6. OMNIPAQUE [Concomitant]
     Active Substance: IOHEXOL
     Indication: SCAN
     Route: 065
  7. TAVANIC [Suspect]
     Active Substance: LEVOFLOXACIN
     Route: 042
     Dates: start: 20151129, end: 20151210
  8. LOVENOX [Suspect]
     Active Substance: ENOXAPARIN SODIUM
     Indication: THROMBOSIS
     Route: 058
     Dates: start: 20151025, end: 20151210
  9. SOLIAN [Suspect]
     Active Substance: AMISULPRIDE
     Indication: PSYCHOTIC DISORDER
     Route: 048
     Dates: start: 20151025, end: 20151216

REACTIONS (1)
  - Drug reaction with eosinophilia and systemic symptoms [Recovered/Resolved]

NARRATIVE: CASE EVENT DATE: 20151209
